FAERS Safety Report 17939435 (Version 1)
Quarter: 2020Q2

REPORT INFORMATION
  Report Type: Spontaneous
  Country: DE (occurrence: DE)
  Receive Date: 20200625
  Receipt Date: 20200625
  Transmission Date: 20200714
  Serious: Yes (Hospitalization)
  Sender: FDA-Public Use
  Company Number: DE-TEVA-2020-DE-1790588

PATIENT
  Age: 83 Year
  Sex: Male

DRUGS (10)
  1. BETAHISTIN AL 12 [Concomitant]
     Dosage: 12 MILLIGRAM DAILY; 0-0-1-0
     Route: 048
  2. ALLOPURINOL. [Concomitant]
     Active Substance: ALLOPURINOL
     Dosage: 100 MILLIGRAM DAILY; 0-0-1-0
     Route: 048
  3. LIMPTAR [Concomitant]
     Active Substance: AMINOPHYLLINE\QUININE SULFATE
     Dosage: 165.74 MILLIGRAM DAILY;  0-0-1-0
     Route: 048
  4. TAMSULOSIN [Concomitant]
     Active Substance: TAMSULOSIN
     Dosage: .4 MILLIGRAM DAILY; 0-0-1-0
     Route: 048
  5. RAMIPRIL. [Concomitant]
     Active Substance: RAMIPRIL
     Dosage: 10 MILLIGRAM DAILY; 1-0-1-0
     Route: 048
  6. SIMVASTATIN. [Concomitant]
     Active Substance: SIMVASTATIN
     Dosage: 20 MILLIGRAM DAILY; 0-0-1-0
     Route: 048
  7. CLOPIDOGREL [Concomitant]
     Active Substance: CLOPIDOGREL BISULFATE
     Dosage: 75 MG
     Route: 048
     Dates: start: 20200226
  8. ACETYLSALICYLS?URE [Suspect]
     Active Substance: ASPIRIN
     Dosage: 100 MG
     Route: 048
     Dates: end: 20200226
  9. BENSERAZID/LEVODOPA [Concomitant]
     Active Substance: BENSERAZIDE\LEVODOPA
     Dosage: 1 DOSAGE FORMS DAILY; 25|100 MG, 0-0-1-0
     Route: 048
  10. METOPROLOL. [Suspect]
     Active Substance: METOPROLOL
     Dosage: 95 MILLIGRAM DAILY; 1-0-1-0
     Route: 048

REACTIONS (3)
  - Bradycardia [Unknown]
  - Product prescribing error [Unknown]
  - Angina pectoris [Unknown]

NARRATIVE: CASE EVENT DATE: 20200226
